FAERS Safety Report 13337406 (Version 1)
Quarter: 2017Q1

REPORT INFORMATION
  Report Type: Spontaneous
  Country: US (occurrence: US)
  Receive Date: 20170315
  Receipt Date: 20170315
  Transmission Date: 20170428
  Serious: No
  Sender: FDA-Public Use
  Company Number: US-MISSION PHARMACAL COMPANY-1064254

PATIENT
  Age: 60 Year
  Sex: Female

DRUGS (1)
  1. THIOLA [Suspect]
     Active Substance: TIOPRONIN
     Indication: CYSTINURIA
     Route: 065
     Dates: start: 20150206, end: 20170303

REACTIONS (3)
  - Abdominal pain upper [Recovered/Resolved]
  - Blood glucose abnormal [Recovered/Resolved]
  - Fatigue [Recovered/Resolved]
